FAERS Safety Report 7272121-X (Version None)
Quarter: 2011Q1

REPORT INFORMATION
  Report Type: 
  Country: None (occurrence: None)
  Receive Date: 20110128
  Receipt Date: 20110113
  Transmission Date: 20110831
  Serious: Yes (Hospitalization)
  Sender: FDA-Public Use
  Company Number: 025462

PATIENT
  Sex: Female
  Weight: 65 kg

DRUGS (4)
  1. METOJECT /00113801/ [Concomitant]
  2. CERTOLIZUMAB PEGOL (CERTOLIZUMAB PEGOL) [Suspect]
     Indication: RHEUMATOID ARTHRITIS
     Dosage: SEE IMAGE
     Route: 058
  3. PREDNISONE TAB [Concomitant]
  4. APRANAX /00256202/ [Concomitant]

REACTIONS (2)
  - DERMAL CYST [None]
  - CONDITION AGGRAVATED [None]
